FAERS Safety Report 9221672 (Version 1)
Quarter: 2013Q2

REPORT INFORMATION
  Report Type: Spontaneous
  Country: US (occurrence: None)
  Receive Date: 20130408
  Receipt Date: 20130408
  Transmission Date: 20140414
  Serious: Yes (Hospitalization, Other)
  Sender: FDA-Public Use
  Company Number: 2013/081

PATIENT
  Age: 83 Year
  Sex: Female

DRUGS (2)
  1. AMLODIPINE [Suspect]
     Indication: HYPERTENSION
  2. ASPIRIN [Suspect]
     Indication: HYPERTENSION

REACTIONS (6)
  - Dyspnoea [None]
  - Fluid overload [None]
  - Blood cholesterol increased [None]
  - Low density lipoprotein increased [None]
  - Weight loss poor [None]
  - Pulmonary congestion [None]
